FAERS Safety Report 6662628-8 (Version None)
Quarter: 2010Q1

REPORT INFORMATION
  Report Type: 
  Country: None (occurrence: None)
  Receive Date: 20100329
  Receipt Date: 20100316
  Transmission Date: 20100710
  Serious: Yes (Other)
  Sender: FDA-Public Use
  Company Number: 2010AL001668

PATIENT
  Age: 40 Year
  Sex: Male

DRUGS (1)
  1. FINASTERIDE [Suspect]
     Indication: ALOPECIA
     Dates: end: 20080101

REACTIONS (3)
  - DARK CIRCLES UNDER EYES [None]
  - DYSGEUSIA [None]
  - SKIN ATROPHY [None]
